FAERS Safety Report 12272749 (Version 1)
Quarter: 2016Q2

REPORT INFORMATION
  Report Type: Spontaneous
  Country: US (occurrence: US)
  Receive Date: 20160415
  Receipt Date: 20160415
  Transmission Date: 20160815
  Serious: No
  Sender: FDA-Public Use
  Company Number: US-PFIZER INC-2016190367

PATIENT

DRUGS (2)
  1. XALKORI [Suspect]
     Active Substance: CRIZOTINIB
     Dosage: UNK, DAILY
  2. XALKORI [Suspect]
     Active Substance: CRIZOTINIB
     Dosage: UNK, 2X/DAY

REACTIONS (1)
  - Dysphagia [Unknown]
